FAERS Safety Report 17067876 (Version 1)
Quarter: 2019Q4

REPORT INFORMATION
  Report Type: Spontaneous
  Country: US (occurrence: US)
  Receive Date: 20191122
  Receipt Date: 20191122
  Transmission Date: 20200122
  Serious: Yes (Death, Life-Threatening, Hospitalization)
  Sender: FDA-Public Use
  Company Number: US-TEVA-2019-US-1142009

PATIENT
  Sex: Male

DRUGS (2)
  1. AMIODARONE HYDROCHLORIDE. [Suspect]
     Active Substance: AMIODARONE HYDROCHLORIDE
     Indication: ATRIAL FIBRILLATION
     Dosage: 200 MG
     Route: 048
  2. AMIODARONE HYDROCHLORIDE TEVA [Suspect]
     Active Substance: AMIODARONE HYDROCHLORIDE
     Indication: ATRIAL FIBRILLATION
     Dosage: 200 MG
     Route: 048

REACTIONS (19)
  - Fatigue [Unknown]
  - Hypothyroidism [Unknown]
  - Nephropathy [Unknown]
  - Myxoedema coma [Unknown]
  - Respiratory failure [Fatal]
  - Cardiac arrest [Unknown]
  - Dyspnoea [Unknown]
  - Endocrine toxicity [Fatal]
  - Pulmonary toxicity [Fatal]
  - Cough [Unknown]
  - Thyroid function test abnormal [Unknown]
  - Pneumonia [Unknown]
  - Confusional state [Unknown]
  - Renal impairment [Unknown]
  - Off label use [Unknown]
  - Anxiety [Unknown]
  - Hallucination [Unknown]
  - Asthenia [Unknown]
  - Pulmonary function test abnormal [Unknown]

NARRATIVE: CASE EVENT DATE: 201803
